FAERS Safety Report 5975355-7 (Version None)
Quarter: 2008Q4

REPORT INFORMATION
  Report Type: 
  Country: None (occurrence: None)
  Receive Date: 20081202
  Receipt Date: 20081119
  Transmission Date: 20090506
  Serious: Yes (Hospitalization)
  Sender: FDA-Public Use
  Company Number: DE-ASTRAZENECA-2008PK02526

PATIENT
  Age: 26617 Day
  Sex: Female

DRUGS (1)
  1. PROPOFOL [Suspect]
     Indication: SEDATIVE THERAPY
     Route: 040
     Dates: start: 20050117, end: 20050117

REACTIONS (4)
  - CHILLS [None]
  - PRODUCT CONTAMINATION [None]
  - PYREXIA [None]
  - SEPSIS [None]
